FAERS Safety Report 9524442 (Version 1)
Quarter: 2013Q3

REPORT INFORMATION
  Report Type: Spontaneous
  Country: US (occurrence: US)
  Receive Date: 20130916
  Receipt Date: 20130916
  Transmission Date: 20140515
  Serious: No
  Sender: FDA-Public Use
  Company Number: US-PFIZER INC-2013264286

PATIENT
  Sex: Female

DRUGS (4)
  1. EFFEXOR XR [Suspect]
     Indication: ANXIETY
     Dosage: UNK
  2. EFFEXOR XR [Suspect]
     Indication: DEPRESSION
     Dosage: 225 MG, DAILY
  3. EFFEXOR XR [Suspect]
     Dosage: UNK
  4. EFFEXOR XR [Suspect]
     Dosage: 225 MG, DAILY

REACTIONS (1)
  - Drug effect decreased [Unknown]
